FAERS Safety Report 4595488-X (Version None)
Quarter: 2005Q1

REPORT INFORMATION
  Report Type: 
  Country: None (occurrence: None)
  Receive Date: 20050302
  Receipt Date: 20050218
  Transmission Date: 20050727
  Serious: Yes (Disabling, Other)
  Sender: FDA-Public Use
  Company Number: US-JNJFOC-20041105195

PATIENT
  Sex: Female

DRUGS (25)
  1. REMICADE [Suspect]
     Route: 042
  2. REMICADE [Suspect]
     Route: 042
  3. REMICADE [Suspect]
     Route: 042
  4. REMICADE [Suspect]
     Route: 042
  5. REMICADE [Suspect]
     Route: 042
  6. REMICADE [Suspect]
     Route: 042
  7. REMICADE [Suspect]
     Route: 042
  8. REMICADE [Suspect]
     Route: 042
  9. REMICADE [Suspect]
     Indication: RHEUMATOID ARTHRITIS
     Route: 042
  10. CIPRO [Concomitant]
  11. BACTRIM DS [Concomitant]
  12. BACTRIM DS [Concomitant]
  13. METHOTREXATE [Concomitant]
  14. METHOTREXATE [Concomitant]
  15. METHOTREXATE [Concomitant]
  16. METHOTREXATE [Concomitant]
  17. METHOTREXATE [Concomitant]
  18. VIOXX [Concomitant]
  19. CENTRUM [Concomitant]
  20. CENTRUM [Concomitant]
  21. NEXIUM [Concomitant]
  22. NEXIUM [Concomitant]
  23. ZETIA [Concomitant]
  24. RELAFEN [Concomitant]
  25. RESTASIS [Concomitant]

REACTIONS (4)
  - LUNG INFILTRATION [None]
  - LUNG NEOPLASM [None]
  - NECROTISING GRANULOMATOUS LYMPHADENITIS [None]
  - TUBERCULIN TEST POSITIVE [None]
